FAERS Safety Report 11324639 (Version 1)
Quarter: 2015Q3

REPORT INFORMATION
  Report Type: Spontaneous
  Country: US (occurrence: US)
  Receive Date: 20150730
  Receipt Date: 20150730
  Transmission Date: 20151125
  Serious: Yes (Death, Hospitalization, Other)
  Sender: FDA-Public Use
  Company Number: US-ASTRAZENECA-2013SE33483

PATIENT
  Age: 21842 Day
  Sex: Female

DRUGS (35)
  1. BYETTA [Suspect]
     Active Substance: EXENATIDE
     Indication: TYPE 2 DIABETES MELLITUS
     Dosage: 10MCG/0.04 ML, TWO TIMES A DAY
     Route: 065
     Dates: start: 20070123
  2. OXYCONTIN [Concomitant]
     Active Substance: OXYCODONE HYDROCHLORIDE
  3. ZOFRAN [Concomitant]
     Active Substance: ONDANSETRON HYDROCHLORIDE
     Indication: DECREASED APPETITE
  4. FAMCICLOVIR. [Concomitant]
     Active Substance: FAMCICLOVIR
     Route: 048
     Dates: start: 20100512
  5. NAPROXEN SODIUM. [Concomitant]
     Active Substance: NAPROXEN SODIUM
     Route: 048
     Dates: start: 20120719
  6. BYETTA [Suspect]
     Active Substance: EXENATIDE
     Indication: TYPE 2 DIABETES MELLITUS
     Dosage: 10MCG/0.04 ML, TWO TIMES A DAY
     Route: 065
     Dates: start: 20110305
  7. GLUCOVANCE [Concomitant]
     Active Substance: GLYBURIDE\METFORMIN HYDROCHLORIDE
     Dosage: 5/500, TWO TIMES A DAY
     Route: 048
     Dates: start: 20080520
  8. CRESTOR [Concomitant]
     Active Substance: ROSUVASTATIN CALCIUM
     Route: 048
     Dates: start: 20100324
  9. PRIMIDONE. [Concomitant]
     Active Substance: PRIMIDONE
     Route: 048
     Dates: start: 20120502
  10. NEXIUM [Concomitant]
     Active Substance: ESOMEPRAZOLE MAGNESIUM
     Route: 048
     Dates: start: 20040305
  11. TOPROL XL [Concomitant]
     Active Substance: METOPROLOL SUCCINATE
     Route: 048
     Dates: start: 20040305
  12. BYETTA [Suspect]
     Active Substance: EXENATIDE
     Indication: TYPE 2 DIABETES MELLITUS
     Route: 065
     Dates: start: 20060121, end: 20110315
  13. BYETTA [Suspect]
     Active Substance: EXENATIDE
     Indication: TYPE 2 DIABETES MELLITUS
     Dosage: 10MCG/0.04 ML, TWO TIMES A DAY
     Route: 065
     Dates: start: 20061007
  14. BYETTA [Suspect]
     Active Substance: EXENATIDE
     Indication: TYPE 2 DIABETES MELLITUS
     Dosage: 10MCG/0.04 ML, TWO TIMES A DAY
     Route: 065
     Dates: start: 20081215
  15. MARINOL [Concomitant]
     Active Substance: DRONABINOL
     Indication: DECREASED APPETITE
  16. ZOFRAN [Concomitant]
     Active Substance: ONDANSETRON HYDROCHLORIDE
     Indication: NAUSEA
  17. DIOVAN HCT [Concomitant]
     Active Substance: HYDROCHLOROTHIAZIDE\VALSARTAN
     Dosage: 160/12.5 DAILY
     Route: 048
     Dates: start: 20040318
  18. BENZONATATE. [Concomitant]
     Active Substance: BENZONATATE
     Route: 048
     Dates: start: 20071128
  19. MARINOL [Concomitant]
     Active Substance: DRONABINOL
     Indication: NAUSEA
  20. ACTOS [Concomitant]
     Active Substance: PIOGLITAZONE HYDROCHLORIDE
     Route: 048
     Dates: start: 20100122
  21. OXYCODONE/ACETAMINOPHENE [Concomitant]
     Dosage: 5-325 MG, EVERY FOUR TO SIX HOURS
     Route: 048
     Dates: start: 20070419
  22. CEFUROXIME. [Concomitant]
     Active Substance: CEFUROXIME
     Route: 048
     Dates: start: 20091028
  23. SUCRALFATE. [Concomitant]
     Active Substance: SUCRALFATE
     Route: 048
     Dates: start: 20101013
  24. BYETTA [Suspect]
     Active Substance: EXENATIDE
     Indication: TYPE 2 DIABETES MELLITUS
     Dosage: 10MCG/0.04 ML, TWO TIMES A DAY
     Route: 065
     Dates: start: 20051114
  25. BYETTA [Suspect]
     Active Substance: EXENATIDE
     Indication: TYPE 2 DIABETES MELLITUS
     Dosage: 10MCG/0.04 ML, TWO TIMES A DAY
     Route: 065
     Dates: start: 20091207
  26. BYETTA [Suspect]
     Active Substance: EXENATIDE
     Indication: TYPE 2 DIABETES MELLITUS
     Dosage: 10MCG/0.04 ML, TWO TIMES A DAY
     Route: 065
     Dates: start: 20101218
  27. ZOLOFT [Concomitant]
     Active Substance: SERTRALINE HYDROCHLORIDE
     Indication: DEPRESSION
     Route: 048
     Dates: start: 20051114
  28. ZETIA [Concomitant]
     Active Substance: EZETIMIBE
     Route: 048
     Dates: start: 20080214
  29. WARFARIN [Concomitant]
     Active Substance: WARFARIN
     Route: 048
     Dates: start: 20081101
  30. LORATADINE. [Concomitant]
     Active Substance: LORATADINE
     Route: 048
     Dates: start: 20090202
  31. TERBINAFINE. [Concomitant]
     Active Substance: TERBINAFINE
     Route: 048
     Dates: start: 20090910
  32. TRILIPIX [Concomitant]
     Active Substance: FENOFIBRIC ACID
     Route: 048
     Dates: start: 20100712
  33. MELOXICAM. [Concomitant]
     Active Substance: MELOXICAM
     Route: 048
     Dates: start: 20100917
  34. ALLOPURINOL. [Concomitant]
     Active Substance: ALLOPURINOL
     Route: 048
     Dates: start: 20040318
  35. BEXTRA [Concomitant]
     Active Substance: VALDECOXIB
     Route: 048
     Dates: start: 20040318

REACTIONS (6)
  - Pancreatic carcinoma metastatic [Fatal]
  - Weight decreased [Unknown]
  - Depression [Unknown]
  - Pancreatitis acute [Unknown]
  - Cholecystitis acute [Unknown]
  - Jaundice [Unknown]

NARRATIVE: CASE EVENT DATE: 20110423
